FAERS Safety Report 5336421-2 (Version None)
Quarter: 2007Q2

REPORT INFORMATION
  Report Type: 
  Country: None (occurrence: None)
  Receive Date: 20070523
  Receipt Date: 20070507
  Transmission Date: 20071010
  Serious: Yes (Life-Threatening, Hospitalization)
  Sender: FDA-Public Use
  Company Number: 2007-00939

PATIENT
  Age: 63 Year
  Sex: Male

DRUGS (7)
  1. VELCADE [Suspect]
     Indication: MULTIPLE MYELOMA
     Dosage: 1.30 MG/M2
     Dates: start: 20050801, end: 20050901
  2. ENDOXAN [Concomitant]
  3. ALKERAN [Concomitant]
  4. CIPROXAN (CIPROFLOXACIN HYDROCHLORIDE) [Concomitant]
  5. NEUTROGIN [Concomitant]
  6. DIFLUCAN [Concomitant]
  7. MAXIPIME [Concomitant]

REACTIONS (8)
  - DYSPNOEA [None]
  - ENGRAFTMENT SYNDROME [None]
  - FEBRILE NEUTROPENIA [None]
  - HYPOXIA [None]
  - HYPOXIC ENCEPHALOPATHY [None]
  - INTERSTITIAL LUNG DISEASE [None]
  - PYREXIA [None]
  - STEM CELL TRANSPLANT [None]
